FAERS Safety Report 15065460 (Version 5)
Quarter: 2018Q4

REPORT INFORMATION
  Report Type: Report from Study
  Country: US (occurrence: US)
  Receive Date: 20180626
  Receipt Date: 20181129
  Transmission Date: 20190204
  Serious: Yes (Other)
  Sender: FDA-Public Use
  Company Number: US-ROCHE-2126652

PATIENT
  Age: 63 Year
  Sex: Female
  Weight: 89.89 kg

DRUGS (2)
  1. OCREVUS [Suspect]
     Active Substance: OCRELIZUMAB
     Indication: RELAPSING-REMITTING MULTIPLE SCLEROSIS
     Route: 042
     Dates: start: 20180508, end: 20180508
  2. OCREVUS [Suspect]
     Active Substance: OCRELIZUMAB
     Dosage: SECOND INFUSION
     Route: 042
     Dates: start: 20180522, end: 20180522

REACTIONS (7)
  - Respiratory tract infection viral [Recovered/Resolved]
  - Cough [Recovered/Resolved]
  - Erythema nodosum [Recovering/Resolving]
  - Orthopnoea [Recovered/Resolved]
  - Eczema [Recovered/Resolved]
  - Eczema [Recovered/Resolved]
  - Erythema nodosum [Not Recovered/Not Resolved]

NARRATIVE: CASE EVENT DATE: 20180602
